FAERS Safety Report 23260791 (Version 1)
Quarter: 2023Q4

REPORT INFORMATION
  Report Type: Spontaneous
  Country: US (occurrence: US)
  Receive Date: 20231205
  Receipt Date: 20231205
  Transmission Date: 20240110
  Serious: Yes (Hospitalization, Other)
  Sender: FDA-Public Use
  Company Number: US-STERISCIENCE B.V.-2023-ST-000045

PATIENT
  Age: 68 Year
  Sex: Male

DRUGS (3)
  1. BUPIVACAINE [Suspect]
     Active Substance: BUPIVACAINE
     Indication: Pain
     Dosage: 2.75 MILLIGRAM PER MILLILITRE
     Route: 037
  2. MORPHINE [Concomitant]
     Active Substance: MORPHINE
     Indication: Pain
     Dosage: UNK
     Route: 037
  3. CLONIDINE [Concomitant]
     Active Substance: CLONIDINE
     Indication: Pain
     Dosage: UNK
     Route: 037

REACTIONS (4)
  - Neurotoxicity [Recovered/Resolved]
  - Cardiotoxicity [Recovered/Resolved]
  - Medication error [Unknown]
  - Off label use [Unknown]
